FAERS Safety Report 6026261-3 (Version None)
Quarter: 2008Q4

REPORT INFORMATION
  Report Type: 
  Country: None (occurrence: None)
  Receive Date: 20081230
  Receipt Date: 20081218
  Transmission Date: 20090506
  Serious: Yes (Death)
  Sender: FDA-Public Use
  Company Number: 08P-167-0493818-00

PATIENT
  Sex: Male

DRUGS (1)
  1. SYNAGIS [Suspect]
     Dosage: 2ND INJECTION - 14 NOV 2008 (2ND INJECTION - 14 NOV 2008)
     Route: 042

REACTIONS (1)
  - PNEUMONIA [None]
